FAERS Safety Report 15507887 (Version 2)
Quarter: 2018Q4

REPORT INFORMATION
  Report Type: Spontaneous
  Country: US (occurrence: US)
  Receive Date: 20181016
  Receipt Date: 20181129
  Transmission Date: 20190205
  Serious: No
  Sender: FDA-Public Use
  Company Number: US-ASTRAZENECA-2018SF24122

PATIENT
  Sex: Male

DRUGS (2)
  1. SPRIVIA INHALER [Concomitant]
  2. TUDORZA PRESSAIR [Suspect]
     Active Substance: ACLIDINIUM BROMIDE
     Dosage: 400 UG, ONE INHALATION TWICE A DAY
     Route: 055

REACTIONS (6)
  - Dyspnoea [Unknown]
  - Product dose omission [Unknown]
  - Wrong technique in device usage process [Unknown]
  - Dementia Alzheimer^s type [Unknown]
  - Intentional device misuse [Unknown]
  - Device issue [Unknown]
